FAERS Safety Report 8573982-4 (Version None)
Quarter: 2012Q3

REPORT INFORMATION
  Report Type: 
  Country: None (occurrence: None)
  Receive Date: 20120806
  Receipt Date: 20120730
  Transmission Date: 20120928
  Serious: Yes (Hospitalization)
  Sender: FDA-Public Use
  Company Number: GB-PFIZER INC-2012185004

PATIENT
  Age: 59 Year
  Sex: Female

DRUGS (2)
  1. DIAZEPAM [Concomitant]
     Dosage: 10 MG, 3X/DAY
  2. PHENYTOIN SODIUM [Suspect]
     Dosage: 100 MG, 3X/DAY

REACTIONS (3)
  - TOXICITY TO VARIOUS AGENTS [None]
  - CONFUSIONAL STATE [None]
  - AGITATION [None]
